FAERS Safety Report 6972651-1 (Version None)
Quarter: 2010Q3

REPORT INFORMATION
  Report Type: 
  Country: None (occurrence: None)
  Receive Date: 20100909
  Receipt Date: 20100830
  Transmission Date: 20110219
  Serious: Yes (Other)
  Sender: FDA-Public Use
  Company Number: ZA-PFIZER INC-2010108704

PATIENT
  Sex: Female

DRUGS (2)
  1. LYRICA [Suspect]
     Indication: BACK PAIN
     Dosage: 75 MG, 2X/DAY
     Route: 048
     Dates: start: 20100801
  2. CELEBREX [Suspect]
     Dosage: 400 MG, DAILY
     Route: 048

REACTIONS (2)
  - ARTHRALGIA [None]
  - WEIGHT BEARING DIFFICULTY [None]
